FAERS Safety Report 5684716-5 (Version None)
Quarter: 2008Q1

REPORT INFORMATION
  Report Type: 
  Country: None (occurrence: None)
  Receive Date: 20080328
  Receipt Date: 20070816
  Transmission Date: 20080703
  Serious: Yes (Disabling, Other)
  Sender: FDA-Public Use
  Company Number: US-BRISTOL-MYERS SQUIBB COMPANY-13858196

PATIENT
  Age: 42 Year
  Sex: Female

DRUGS (5)
  1. ERBITUX [Suspect]
     Indication: COLORECTAL CANCER
     Dosage: TEST DOSE OF 20MG WAS ADMINISTRED OVER 10MINUTES ON 03-JUL-2007.
     Route: 042
     Dates: start: 20070703, end: 20070703
  2. TYLENOL (CAPLET) [Concomitant]
  3. DEXAMETHASONE TAB [Concomitant]
  4. DIPHENHYDRAMINE HCL [Concomitant]
  5. CIMETIDINE [Concomitant]

REACTIONS (2)
  - ANAPHYLACTIC REACTION [None]
  - INFUSION RELATED REACTION [None]
